FAERS Safety Report 8572650-2 (Version None)
Quarter: 2012Q3

REPORT INFORMATION
  Report Type: 
  Country: None (occurrence: None)
  Receive Date: 20120806
  Receipt Date: 20120727
  Transmission Date: 20120928
  Serious: No
  Sender: FDA-Public Use
  Company Number: US-009507513-1207USA011829

PATIENT

DRUGS (6)
  1. CETIRIZINE HYDROCHLORIDE [Concomitant]
     Indication: HYPERSENSITIVITY
     Dosage: 1 DF, QD
     Route: 048
  2. ZOCOR [Suspect]
     Route: 048
  3. CHLORTHALIDONE [Concomitant]
     Indication: BLOOD PRESSURE
     Dosage: 0.5 DF, QD
  4. LISINOPRIL [Concomitant]
     Indication: BLOOD PRESSURE
     Dosage: 1 DF, QD
     Route: 048
  5. ASPIRIN [Concomitant]
     Indication: CARDIOVASCULAR INSUFFICIENCY
     Dosage: 1 DF, UNK
     Route: 048
  6. METFORMIN HYDROCHLORIDE [Concomitant]
     Indication: DIABETES MELLITUS
     Dosage: 1 DF, UNK
     Route: 048

REACTIONS (2)
  - ASTHENIA [None]
  - DRUG HYPERSENSITIVITY [None]
